FAERS Safety Report 16349992 (Version 2)
Quarter: 2019Q3

REPORT INFORMATION
  Report Type: Spontaneous
  Country: RO (occurrence: RO)
  Receive Date: 20190523
  Receipt Date: 20190701
  Transmission Date: 20191004
  Serious: Yes (Death, Other)
  Sender: FDA-Public Use
  Company Number: PHHY2019RO117223

PATIENT
  Age: 68 Year
  Sex: Male

DRUGS (4)
  1. FLUOROURACIL. [Suspect]
     Active Substance: FLUOROURACIL
     Indication: ADENOCARCINOMA OF COLON
     Dosage: UNK
     Route: 065
     Dates: start: 20180323
  2. OXALIPLATIN. [Suspect]
     Active Substance: OXALIPLATIN
     Indication: ADENOCARCINOMA OF COLON
     Dosage: UNK
     Route: 065
     Dates: start: 20180323
  3. AVASTIN [Suspect]
     Active Substance: BEVACIZUMAB
     Indication: ADENOCARCINOMA OF COLON
     Dosage: 5 MG, Q2W
     Route: 065
     Dates: start: 20180323
  4. FOLINIC ACID [Suspect]
     Active Substance: LEUCOVORIN
     Indication: ADENOCARCINOMA OF COLON
     Dosage: UNK
     Route: 065
     Dates: start: 20180323

REACTIONS (14)
  - Faeces pale [Unknown]
  - Neurotoxicity [Unknown]
  - Biliary tract disorder [Unknown]
  - Chromaturia [Unknown]
  - Thrombocytopenia [Unknown]
  - Vertigo [Unknown]
  - Asthenia [Unknown]
  - Fatigue [Unknown]
  - Gait disturbance [Unknown]
  - Jaundice [Unknown]
  - Cholestasis [Unknown]
  - Blood pressure fluctuation [Unknown]
  - Hepatocellular injury [Unknown]
  - Death [Fatal]

NARRATIVE: CASE EVENT DATE: 20180410
